FAERS Safety Report 8773271 (Version 2)
Quarter: 2012Q4

REPORT INFORMATION
  Report Type: 
  Country: FR (occurrence: FR)
  Receive Date: 20120908
  Receipt Date: 20120917
  Transmission Date: 20130627
  Serious: Yes (Hospitalization)
  Sender: FDA-Public Use
  Company Number: FR-B.I. PHARMACEUTICALS,INC./RIDGEFIELD-2012-FF-01141FF

PATIENT
  Age: 76 Year
  Sex: Male

DRUGS (12)
  1. MECIR [Suspect]
     Dosage: 0.4 mg
     Route: 048
     Dates: start: 20090522
  2. OLANZAPINE [Suspect]
     Dosage: 7.5 mg
     Route: 048
     Dates: start: 20081226
  3. VENLAFAXINE [Suspect]
     Dosage: 150 mg
     Route: 048
     Dates: start: 20120706
  4. LAMOTRIGINE [Suspect]
     Dosage: 150 mg
     Route: 048
     Dates: start: 20120706
  5. NORSET [Suspect]
     Dosage: 15 mg
     Route: 048
     Dates: start: 20120706
  6. IMOVANE [Suspect]
     Route: 048
     Dates: start: 20090522
  7. LEPTICUR [Suspect]
     Dosage: 15 mg
     Route: 048
     Dates: start: 20090522
  8. GLUCOPHAGE [Suspect]
     Dosage: 2000 mg
     Route: 048
     Dates: start: 20090511
  9. PLAVIX [Suspect]
     Route: 048
     Dates: start: 20090522
  10. SPASFON LYOC [Suspect]
     Dosage: 240 mg
     Route: 048
  11. SERESTA [Suspect]
     Dosage: 50 mg
     Route: 048
  12. HEMI-DAONIL [Suspect]
     Dosage: 2.5 mg
     Route: 048

REACTIONS (1)
  - Gait disturbance [Recovered/Resolved]
